FAERS Safety Report 7799255-5 (Version None)
Quarter: 2011Q4

REPORT INFORMATION
  Report Type: 
  Country: None (occurrence: None)
  Receive Date: 20111006
  Receipt Date: 20101110
  Transmission Date: 20120403
  Serious: No
  Sender: FDA-Public Use
  Company Number: US-GLAXOSMITHKLINE-A0891830A

PATIENT
  Sex: Female

DRUGS (4)
  1. ACZONE [Concomitant]
  2. SOAP FREE CLEANSER [Concomitant]
  3. DUAC [Suspect]
     Indication: ACNE
     Dosage: 1APP AT NIGHT
     Route: 061
     Dates: start: 20101104, end: 20101107
  4. ACYCLOVIR [Concomitant]

REACTIONS (5)
  - SKIN EXFOLIATION [None]
  - RASH MACULAR [None]
  - BURNING SENSATION [None]
  - PAIN [None]
  - PRURITUS [None]
